FAERS Safety Report 14923206 (Version 6)
Quarter: 2019Q4

REPORT INFORMATION
  Report Type: Report from Study
  Country: US (occurrence: US)
  Receive Date: 20180522
  Receipt Date: 20191105
  Transmission Date: 20200122
  Serious: Yes (Other)
  Sender: FDA-Public Use
  Company Number: US-TESARO, INC-US-2018TSO00574

PATIENT
  Age: 70 Year
  Sex: Female

DRUGS (5)
  1. NIRAPARIB [Suspect]
     Active Substance: NIRAPARIB
     Dosage: 300 MG, QPM WITHOUT FOOD
     Dates: start: 201808
  2. NIRAPARIB [Suspect]
     Active Substance: NIRAPARIB
     Dosage: 300MG AND 200MG ALTERNATING EVERY OTHER DAY
     Route: 048
  3. NIRAPARIB [Suspect]
     Active Substance: NIRAPARIB
     Indication: OVARIAN CANCER
     Dosage: 300 MG, QD
     Route: 048
     Dates: start: 20170930, end: 20180624
  4. NIRAPARIB [Suspect]
     Active Substance: NIRAPARIB
     Dosage: 300MG AND 200MG ALTERNATING EVERY OTHER DAY
  5. NIRAPARIB [Suspect]
     Active Substance: NIRAPARIB
     Dosage: 200 MG, QD
     Route: 048
     Dates: start: 20180702

REACTIONS (6)
  - Constipation [Recovering/Resolving]
  - Fatigue [Recovering/Resolving]
  - Emotional distress [Unknown]
  - Inappropriate schedule of product administration [Unknown]
  - Breast cancer [Recovered/Resolved]
  - Eastern Cooperative Oncology Group performance status worsened [Unknown]

NARRATIVE: CASE EVENT DATE: 20180601
